FAERS Safety Report 21292123 (Version 12)
Quarter: 2023Q1

REPORT INFORMATION
  Report Type: Report from Study
  Country: TR (occurrence: TR)
  Receive Date: 20220904
  Receipt Date: 20230302
  Transmission Date: 20230417
  Serious: Yes (Hospitalization)
  Sender: FDA-Public Use
  Company Number: TR-AMGEN-TURCT2022151842

PATIENT
  Age: 11 Year
  Sex: Male

DRUGS (34)
  1. CARFILZOMIB [Suspect]
     Active Substance: CARFILZOMIB
     Indication: Acute lymphocytic leukaemia
     Dosage: 67 MILLIGRAM
     Route: 042
     Dates: start: 20220818
  2. DEXAMETHASONE [Suspect]
     Active Substance: DEXAMETHASONE
     Indication: Acute lymphocytic leukaemia
     Dosage: 3.6 MILLIGRAM
     Route: 065
     Dates: start: 20220818
  3. VINCRISTINE [Suspect]
     Active Substance: VINCRISTINE
     Indication: Acute lymphocytic leukaemia
     Dosage: UNK
     Route: 065
  4. DAUNORUBICIN [Suspect]
     Active Substance: DAUNORUBICIN
     Indication: Acute lymphocytic leukaemia
     Dosage: 72 MILLIGRAM
     Route: 065
     Dates: start: 20220819
  5. PEG/L-ASPARAGINASE [Suspect]
     Active Substance: PEGASPARGASE
     Indication: Acute lymphocytic leukaemia
     Dosage: 3000 UNK
     Route: 065
     Dates: start: 20220821
  6. FILGRASTIM [Concomitant]
     Active Substance: FILGRASTIM
     Dosage: 30 UNK
     Route: 042
     Dates: start: 20220823, end: 20220914
  7. FILGRASTIM [Concomitant]
     Active Substance: FILGRASTIM
     Dosage: 30 UNK
     Route: 042
     Dates: start: 20220823, end: 20220928
  8. ONDANSETRON HYDROCHLORIDE [Concomitant]
     Active Substance: ONDANSETRON HYDROCHLORIDE
     Dosage: 4 MILLIGRAM
     Route: 042
     Dates: start: 20220817, end: 20220914
  9. SODIUM BICARBONATE [Concomitant]
     Active Substance: SODIUM BICARBONATE
     Dosage: 100-150 MILLILITER
     Route: 042
     Dates: start: 20220817, end: 20220831
  10. SUCRALFATE [Concomitant]
     Active Substance: SUCRALFATE
     Dosage: 10 MILLILITER
     Route: 042
     Dates: start: 20220818, end: 20220907
  11. KETALAR [Concomitant]
     Active Substance: KETAMINE HYDROCHLORIDE
     Dosage: 4 MILLIGRAM/3  MILLILITER
     Route: 042
     Dates: start: 20220817, end: 20220827
  12. Laufran [Concomitant]
     Dosage: 500 MILLIGRAM
     Route: 042
     Dates: start: 20220827, end: 20220904
  13. PANTOPRAZOLE SODIUM [Concomitant]
     Active Substance: PANTOPRAZOLE SODIUM
     Dosage: 40 MILLIGRAM
     Route: 042
     Dates: start: 20220821, end: 20220928
  14. FUROSEMIDE [Concomitant]
     Active Substance: FUROSEMIDE
     Dosage: 20 MILLIGRAM
     Route: 042
     Dates: start: 20220818, end: 20220914
  15. PHENIRAMINE MALEATE [Concomitant]
     Active Substance: PHENIRAMINE MALEATE
     Dosage: 45.5 MILLIGRAM
     Route: 042
     Dates: start: 20220819, end: 20220819
  16. DOXAZOSIN MESYLATE [Concomitant]
     Active Substance: DOXAZOSIN MESYLATE
     Dosage: 8 MILLIGRAM
     Route: 048
     Dates: start: 20220827, end: 20220905
  17. CAPTOPRIL [Concomitant]
     Active Substance: CAPTOPRIL
     Dosage: 25 MILLIGRAM
     Route: 048
     Dates: start: 20220827, end: 20220831
  18. PAROL [Concomitant]
     Active Substance: ACETAMINOPHEN
     Dosage: 400 MILLIGRAM
     Route: 042
     Dates: start: 20220819, end: 20220901
  19. Calcimax [Concomitant]
     Dosage: 880 UNK
     Route: 042
     Dates: start: 20220820, end: 20220823
  20. REFRESH CLASSIC [Concomitant]
     Active Substance: POLYVINYL ALCOHOL\POVIDONE
     Dosage: 0.4 GTT DROPS
     Route: 050
     Dates: start: 20220821, end: 20220827
  21. PEDIA D [Concomitant]
     Dosage: 10 UNK
     Route: 048
     Dates: start: 20220821, end: 20220928
  22. Rennie [Concomitant]
     Dosage: 680 MILLIGRAM
     Route: 048
     Dates: start: 20220823, end: 20220823
  23. SELOVITA D3 [Concomitant]
     Dosage: 10 UNK
     Route: 048
     Dates: start: 20220820, end: 20220820
  24. TAZERACIN [Concomitant]
     Dosage: 4500 MILLIGRAM
     Route: 042
     Dates: start: 20220820, end: 20220826
  25. FLUCONAZOLE [Concomitant]
     Active Substance: FLUCONAZOLE
     Dosage: 100 MILLIGRAM
     Route: 048
     Dates: start: 20220820, end: 20220823
  26. AMIKACIN SULFATE [Concomitant]
     Active Substance: AMIKACIN SULFATE
     Dosage: 500 MILLIGRAM
     Route: 042
     Dates: start: 20220827, end: 20220904
  27. LEVETIRACETAM [Concomitant]
     Active Substance: LEVETIRACETAM
     Dosage: 500 MILLIGRAM
     Route: 042
     Dates: start: 20220828, end: 20220902
  28. ALLOPURINOL [Concomitant]
     Active Substance: ALLOPURINOL
     Dosage: 300 MILLIGRAM
     Route: 048
     Dates: start: 20220820, end: 20220823
  29. SEDEVER [Concomitant]
     Dosage: 100 MILLIGRAM
     Route: 042
     Dates: start: 20220828, end: 20220829
  30. INVANZ [Concomitant]
     Active Substance: ERTAPENEM SODIUM
     Dosage: 10 MILLILITER
     Route: 048
     Dates: start: 20220827, end: 20220904
  31. CALCIUM GLUCONATE MONOHYDRATE [Concomitant]
     Dosage: UNK
     Route: 042
     Dates: start: 20220819, end: 20220914
  32. FLUKOPOL [Concomitant]
     Dosage: 100 MILLIGRAM
     Route: 042
     Dates: start: 20220825, end: 20220904
  33. IBUPROFEN [Concomitant]
     Active Substance: IBUPROFEN
     Dosage: 10 MILLILITER
     Route: 048
     Dates: start: 20220828, end: 20220901
  34. GRANITRON [Concomitant]
     Dosage: 3 MILLIGRAM
     Route: 042
     Dates: start: 20220817, end: 20220817

REACTIONS (2)
  - Posterior reversible encephalopathy syndrome [Recovered/Resolved]
  - Leukopenia [Recovered/Resolved]

NARRATIVE: CASE EVENT DATE: 20220831
